FAERS Safety Report 11435436 (Version 1)
Quarter: 2015Q3

REPORT INFORMATION
  Report Type: Spontaneous
  Country: US (occurrence: US)
  Receive Date: 20150831
  Receipt Date: 20150831
  Transmission Date: 20151125
  Serious: No
  Sender: FDA-Public Use
  Company Number: US-PFIZER INC-2015284863

PATIENT
  Sex: Female

DRUGS (6)
  1. TETRACYCLINE HCL [Suspect]
     Active Substance: TETRACYCLINE HYDROCHLORIDE
  2. CODEINE [Suspect]
     Active Substance: CODEINE
  3. TRAMADOL. [Suspect]
     Active Substance: TRAMADOL
  4. DIFLUCAN [Suspect]
     Active Substance: FLUCONAZOLE
  5. HEPARIN SODIUM. [Suspect]
     Active Substance: HEPARIN SODIUM
  6. ERYTHROMYCIN. [Suspect]
     Active Substance: ERYTHROMYCIN

REACTIONS (1)
  - Drug hypersensitivity [Unknown]
